FAERS Safety Report 7897795-1 (Version None)
Quarter: 2011Q4

REPORT INFORMATION
  Report Type: 
  Country: None (occurrence: None)
  Receive Date: 20111107
  Receipt Date: 20111027
  Transmission Date: 20120403
  Serious: Yes (Hospitalization)
  Sender: FDA-Public Use
  Company Number: US-JNJFOC-20111012690

PATIENT
  Age: 7 Decade
  Sex: Female

DRUGS (2)
  1. REMICADE [Suspect]
     Route: 042
     Dates: start: 20111001, end: 20111001
  2. REMICADE [Suspect]
     Indication: PRODUCT USED FOR UNKNOWN INDICATION
     Route: 042
     Dates: start: 20080101, end: 20080101

REACTIONS (5)
  - BLOOD PRESSURE DECREASED [None]
  - ADVERSE EVENT [None]
  - PRURITUS [None]
  - LOSS OF CONSCIOUSNESS [None]
  - INFUSION RELATED REACTION [None]
